FAERS Safety Report 8987217 (Version 1)
Quarter: 2012Q4

REPORT INFORMATION
  Report Type: Report from Study
  Country: US (occurrence: US)
  Receive Date: 20121226
  Receipt Date: 20121226
  Transmission Date: 20130627
  Serious: Yes (Hospitalization)
  Sender: FDA-Public Use
  Company Number: US-US-EMD SERONO, INC.-7183617

PATIENT
  Sex: Male

DRUGS (7)
  1. REBIF [Suspect]
     Indication: MULTIPLE SCLEROSIS
     Route: 058
     Dates: start: 20071228
  2. PLAVIX [Suspect]
     Indication: MYOCARDIAL INFARCTION
  3. PLAVIX [Suspect]
     Indication: STENT PLACEMENT
  4. BACLOFEN [Concomitant]
     Indication: PREMEDICATION
  5. IBUPROFEN [Concomitant]
     Indication: PREMEDICATION
  6. ASPIRIN [Concomitant]
     Indication: PRODUCT USED FOR UNKNOWN INDICATION
     Dates: end: 201209
  7. ASPIRIN [Concomitant]
     Dates: start: 201209

REACTIONS (1)
  - Epistaxis [Recovered/Resolved]
